FAERS Safety Report 21094298 (Version 2)
Quarter: 2023Q2

REPORT INFORMATION
  Report Type: Spontaneous
  Country: GB (occurrence: GB)
  Receive Date: 20220718
  Receipt Date: 20230602
  Transmission Date: 20230722
  Serious: Yes (Other)
  Sender: FDA-Public Use
  Company Number: None

PATIENT
  Age: 78 Year

DRUGS (1)
  1. ARIPIPRAZOLE [Suspect]
     Active Substance: ARIPIPRAZOLE
     Indication: Product used for unknown indication
     Dosage: STARTED @ 2.5MG THEN INCREASED TO 5MG THEN 7MG. NOW ON 2.5MG...COMOMG.DOQN SLOWLY?UNDER SUPERVISI..
     Route: 065

REACTIONS (3)
  - Weight decreased [Recovering/Resolving]
  - Restlessness [Recovering/Resolving]
  - Emotional distress [Unknown]
